FAERS Safety Report 7895169-0 (Version None)
Quarter: 2011Q4

REPORT INFORMATION
  Report Type: 
  Country: None (occurrence: None)
  Receive Date: 20111106
  Receipt Date: 20110823
  Transmission Date: 20120403
  Serious: No
  Sender: FDA-Public Use
  Company Number: US-AMGEN-USASP2011043045

PATIENT
  Age: 46 Year
  Sex: Male
  Weight: 87 kg

DRUGS (5)
  1. FOLIC ACID [Concomitant]
  2. ENBREL [Suspect]
     Indication: RHEUMATOID ARTHRITIS
     Dosage: 50 MG, QWK
  3. ALCOHOL [Concomitant]
  4. PREDNISONE [Concomitant]
  5. REQUIP [Concomitant]

REACTIONS (1)
  - GASTROENTERITIS VIRAL [None]
